FAERS Safety Report 6019040-4 (Version None)
Quarter: 2008Q4

REPORT INFORMATION
  Report Type: 
  Country: None (occurrence: None)
  Receive Date: 20081224
  Receipt Date: 20081212
  Transmission Date: 20090506
  Serious: Yes (Congenital Anomaly, Other)
  Sender: FDA-Public Use
  Company Number: US-PFIZER INC-2008081179

PATIENT
  Sex: Male
  Weight: 3 kg

DRUGS (13)
  1. ZOLOFT [Suspect]
     Dosage: 50 MG, 1X/DAY
     Route: 048
  2. MAGNESIUM SULFATE [Concomitant]
     Dates: start: 20030201, end: 20030302
  3. KEFLEX [Concomitant]
  4. PROCARDIA [Concomitant]
     Route: 048
  5. ZANTAC [Concomitant]
     Route: 048
  6. MACROBID [Concomitant]
     Route: 048
  7. LORTAB [Concomitant]
     Indication: PAIN
  8. ZOLPIDEM [Concomitant]
  9. BRETHINE [Concomitant]
  10. DEXAMETHASONE [Concomitant]
  11. FERROUS SULFATE TAB [Concomitant]
  12. AMBILAN [Concomitant]
     Dosage: 10 MG, UNK
  13. MORPHINE [Concomitant]
     Dosage: 10 MG, UNK

REACTIONS (4)
  - BICUSPID AORTIC VALVE [None]
  - DRUG EXPOSURE DURING PREGNANCY [None]
  - INTERRUPTION OF AORTIC ARCH [None]
  - VENTRICULAR SEPTAL DEFECT [None]
